FAERS Safety Report 4385199-8 (Version None)
Quarter: 2004Q2

REPORT INFORMATION
  Report Type: 
  Country: None (occurrence: None)
  Receive Date: 20040607
  Receipt Date: 20031117
  Transmission Date: 20050107
  Serious: Yes (Other)
  Sender: FDA-Public Use
  Company Number: 352121

PATIENT
  Sex: 0

DRUGS (2)
  1. ACCUTANE [Suspect]
     Dates: start: 19990704, end: 20000110
  2. NORPLANT [Concomitant]

REACTIONS (1)
  - ABORTION INDUCED [None]
